FAERS Safety Report 9947846 (Version 1)
Quarter: 2014Q1

REPORT INFORMATION
  Report Type: Spontaneous
  Country: US (occurrence: US)
  Receive Date: 20140303
  Receipt Date: 20140303
  Transmission Date: 20141002
  Serious: No
  Sender: FDA-Public Use
  Company Number: US-ABBVIE-13P-163-1061200-00

PATIENT
  Sex: Female

DRUGS (4)
  1. HUMIRA [Suspect]
     Indication: RHEUMATOID ARTHRITIS
     Route: 058
     Dates: start: 2004, end: 201210
  2. HUMIRA [Suspect]
     Route: 058
     Dates: start: 201303
  3. PRENATAL VITAMINS [Concomitant]
     Indication: PREGNANCY
     Dates: start: 201005
  4. PRENATAL VITAMINS [Concomitant]
     Dates: start: 2012

REACTIONS (3)
  - Dizziness [Recovered/Resolved]
  - Vomiting in pregnancy [Recovered/Resolved]
  - Vomiting in pregnancy [Recovered/Resolved]
